FAERS Safety Report 8838084 (Version 1)
Quarter: 2012Q4

REPORT INFORMATION
  Report Type: 
  Country: TR (occurrence: TR)
  Receive Date: 20121012
  Receipt Date: 20121012
  Transmission Date: 20130627
  Serious: Yes (Life-Threatening, Hospitalization)
  Sender: FDA-Public Use
  Company Number: TR-BAXTER-2012BAX019510

PATIENT
  Age: 10 Year
  Sex: Male
  Weight: 40 kg

DRUGS (2)
  1. KIOVIG [Suspect]
     Indication: PRIMARY IMMUNODEFICIENCY SYNDROME
     Dosage: 0.5/kg
     Route: 042
     Dates: start: 20120904, end: 20120904
  2. KIOVIG [Suspect]
     Indication: HYPOGAMMAGLOBULINEMIA

REACTIONS (2)
  - Pyrexia [Recovered/Resolved]
  - Convulsion [Recovered/Resolved]
